FAERS Safety Report 10461385 (Version 3)
Quarter: 2014Q4

REPORT INFORMATION
  Report Type: Spontaneous
  Country: US (occurrence: US)
  Receive Date: 20140918
  Receipt Date: 20141028
  Transmission Date: 20150528
  Serious: Yes (Other)
  Sender: FDA-Public Use
  Company Number: US-JNJFOC-20140906463

PATIENT
  Age: 44 Year
  Sex: Female

DRUGS (15)
  1. IMITREX [Suspect]
     Active Substance: SUMATRIPTAN\SUMATRIPTAN SUCCINATE
     Indication: MIGRAINE
     Dosage: AS NEEDED
     Route: 048
     Dates: start: 201005
  2. LOVAZA [Suspect]
     Active Substance: OMEGA-3-ACID ETHYL ESTERS
     Indication: PRODUCT USED FOR UNKNOWN INDICATION
     Dosage: 2 CAPSULES
     Route: 048
     Dates: start: 2011
  3. ESTROGEN [Suspect]
     Active Substance: ESTRONE\SUS SCROFA OVARY
     Indication: PRODUCT USED FOR UNKNOWN INDICATION
     Route: 065
     Dates: end: 201010
  4. IMITREX [Suspect]
     Active Substance: SUMATRIPTAN\SUMATRIPTAN SUCCINATE
     Indication: MIGRAINE
     Dosage: AS NEEDED
     Route: 048
     Dates: start: 201005
  5. CLONAZEPAM. [Concomitant]
     Active Substance: CLONAZEPAM
     Route: 065
  6. IMITREX [Suspect]
     Active Substance: SUMATRIPTAN\SUMATRIPTAN SUCCINATE
     Indication: MIGRAINE
     Dosage: AS NEEDED
     Route: 045
     Dates: start: 201005
  7. POTASSIUM CITRATE. [Concomitant]
     Active Substance: POTASSIUM CITRATE
     Route: 065
  8. FLEXERIL [Concomitant]
     Active Substance: CYCLOBENZAPRINE HYDROCHLORIDE
     Route: 065
  9. LORATADINE. [Concomitant]
     Active Substance: LORATADINE
     Route: 065
  10. FLONASE [Suspect]
     Active Substance: FLUTICASONE PROPIONATE
     Indication: MULTIPLE ALLERGIES
     Dosage: 2 SPRAYS PER DAY
     Route: 045
     Dates: start: 20100811
  11. TYLENOL WITH CODEINE [Suspect]
     Active Substance: ACETAMINOPHEN\CODEINE PHOSPHATE
     Indication: PRODUCT USED FOR UNKNOWN INDICATION
     Dosage: 8 TABLETS
     Route: 065
  12. CRESTOR [Concomitant]
     Active Substance: ROSUVASTATIN CALCIUM
     Route: 065
  13. TRILEPTAL [Concomitant]
     Active Substance: OXCARBAZEPINE
     Route: 065
  14. FLONASE [Suspect]
     Active Substance: FLUTICASONE PROPIONATE
     Indication: SINUS CONGESTION
     Dosage: 2 SPRAYS PER DAY
     Route: 045
     Dates: start: 20100811
  15. TYLENOL NO.3 [Concomitant]
     Indication: ENDOMETRIOSIS
     Route: 065

REACTIONS (13)
  - Nasopharyngitis [Unknown]
  - Hepatic neoplasm [Unknown]
  - Hypersensitivity [Unknown]
  - Nausea [Unknown]
  - Influenza [Unknown]
  - Drug ineffective [Unknown]
  - Menorrhagia [Unknown]
  - Migraine [Unknown]
  - Pain [Unknown]
  - Drug dose omission [Unknown]
  - Endometriosis [Unknown]
  - Multiple allergies [Unknown]
  - Headache [Unknown]

NARRATIVE: CASE EVENT DATE: 201009
